FAERS Safety Report 24272573 (Version 1)
Quarter: 2024Q3

REPORT INFORMATION
  Report Type: Spontaneous
  Country: US (occurrence: US)
  Receive Date: 20240902
  Receipt Date: 20240902
  Transmission Date: 20241017
  Serious: No
  Sender: ABBVIE
  Company Number: US-ABBVIE-5899977

PATIENT
  Sex: Female

DRUGS (5)
  1. RESTASIS [Suspect]
     Active Substance: CYCLOSPORINE
     Indication: Dry eye
     Dosage: FORM STRENGTH: 0.05 MILLIGRAMS? 0.5MG/ML SOL (9054XMD)
     Route: 047
  2. XIIDRA [Suspect]
     Active Substance: LIFITEGRAST
     Indication: Product used for unknown indication
     Route: 065
  3. ZEAXANTHIN [Concomitant]
     Active Substance: ZEAXANTHIN
     Indication: Dry eye
  4. LUTEIN [Concomitant]
     Active Substance: LUTEIN
     Indication: Dry eye
  5. Omega [Concomitant]
     Indication: Dry eye
     Dosage: HIGH EICOSAPENTAENOIC ACID

REACTIONS (7)
  - Pharyngitis streptococcal [Not Recovered/Not Resolved]
  - Vision blurred [Not Recovered/Not Resolved]
  - Speech disorder [Not Recovered/Not Resolved]
  - Feeling abnormal [Unknown]
  - Drug ineffective [Unknown]
  - Sinus headache [Unknown]
  - Eye irritation [Unknown]
